FAERS Safety Report 7554980-6 (Version None)
Quarter: 2011Q2

REPORT INFORMATION
  Report Type: 
  Country: None (occurrence: None)
  Receive Date: 20110617
  Receipt Date: 20110609
  Transmission Date: 20111010
  Serious: Yes (Other)
  Sender: FDA-Public Use
  Company Number: IT-JNJFOC-20110605589

PATIENT
  Age: 32 Year
  Sex: Male

DRUGS (1)
  1. HALDOL [Suspect]
     Indication: SELF INJURIOUS BEHAVIOUR
     Route: 048

REACTIONS (3)
  - SLUGGISHNESS [None]
  - INTENTIONAL OVERDOSE [None]
  - AGITATION [None]
